FAERS Safety Report 8892889 (Version 1)
Quarter: 2012Q4

REPORT INFORMATION
  Report Type: Spontaneous
  Country: CH (occurrence: None)
  Receive Date: 20121031
  Receipt Date: 20121031
  Transmission Date: 20130627
  Serious: Yes (Other)
  Sender: FDA-Public Use
  Company Number: ANI_2010_1063537

PATIENT
  Age: 16 Year
  Sex: Male

DRUGS (1)
  1. FLUVOXAMINE [Suspect]
     Route: 048
     Dates: start: 200802, end: 200806

REACTIONS (1)
  - Electrocardiogram abnormal [None]
